FAERS Safety Report 13745026 (Version 1)
Quarter: 2017Q3

REPORT INFORMATION
  Report Type: Spontaneous
  Country: US (occurrence: US)
  Receive Date: 20170712
  Receipt Date: 20170712
  Transmission Date: 20171127
  Serious: No
  Sender: FDA-Public Use
  Company Number: US-PFIZER INC-2017302055

PATIENT

DRUGS (4)
  1. IBRANCE [Suspect]
     Active Substance: PALBOCICLIB
     Dosage: 75 MG, UNK
  2. IBRANCE [Suspect]
     Active Substance: PALBOCICLIB
     Dosage: 100 MG, UNK
     Dates: end: 201612
  3. FULVESTRANT. [Suspect]
     Active Substance: FULVESTRANT
     Dosage: 1000 MG, UNK
     Dates: start: 201610
  4. IBRANCE [Suspect]
     Active Substance: PALBOCICLIB
     Dosage: 125 (UNIT NOT PROVIDED), FOR 15 DAYS
     Dates: start: 201610

REACTIONS (1)
  - White blood cell count decreased [Unknown]
